FAERS Safety Report 24194027 (Version 1)
Quarter: 2024Q3

REPORT INFORMATION
  Report Type: Spontaneous
  Country: US (occurrence: US)
  Receive Date: 20240809
  Receipt Date: 20240809
  Transmission Date: 20241016
  Serious: No
  Sender: SANOFI AVENTIS
  Company Number: US-SA-SAC20240807000462

PATIENT
  Sex: Male

DRUGS (6)
  1. DUPIXENT [Suspect]
     Active Substance: DUPILUMAB
     Indication: Neurodermatitis
     Dosage: 300 MG, QOW
     Route: 058
     Dates: start: 20231219
  2. CLOBETASOL [Concomitant]
     Active Substance: CLOBETASOL
  3. EZETIMIBE [Concomitant]
     Active Substance: EZETIMIBE
  4. TACROLIMUS [Concomitant]
     Active Substance: TACROLIMUS
  5. TAMSULOSIN [Concomitant]
     Active Substance: TAMSULOSIN
  6. METHYLPREDNISOLONE [Concomitant]
     Active Substance: METHYLPREDNISOLONE

REACTIONS (1)
  - Sleep disorder due to a general medical condition [Unknown]
